FAERS Safety Report 7931322-5 (Version None)
Quarter: 2011Q4

REPORT INFORMATION
  Report Type: 
  Country: None (occurrence: None)
  Receive Date: 20111121
  Receipt Date: 20111111
  Transmission Date: 20120403
  Serious: Yes (Hospitalization, Other)
  Sender: FDA-Public Use
  Company Number: US-GENZYME-POMP-1001868

PATIENT

DRUGS (1)
  1. LUMIZYME [Suspect]
     Indication: GLYCOGEN STORAGE DISEASE TYPE II
     Dosage: UNK
     Route: 042
     Dates: start: 20101112, end: 20110919

REACTIONS (3)
  - RESPIRATORY DISORDER [None]
  - FEEDING TUBE COMPLICATION [None]
  - LUNG INFECTION [None]
